FAERS Safety Report 5080262-0 (Version None)
Quarter: 2006Q3

REPORT INFORMATION
  Report Type: 
  Country: None (occurrence: None)
  Receive Date: 20060815
  Receipt Date: 20060803
  Transmission Date: 20061208
  Serious: Yes (Other)
  Sender: FDA-Public Use
  Company Number: AU-BRISTOL-MYERS SQUIBB COMPANY-13464649

PATIENT

DRUGS (2)
  1. TAXOL [Suspect]
     Indication: OVARIAN CANCER
  2. CARBOPLATIN [Concomitant]
     Indication: OVARIAN CANCER

REACTIONS (4)
  - ARTHRALGIA [None]
  - BEDRIDDEN [None]
  - MYALGIA [None]
  - NEUROPATHY [None]
